FAERS Safety Report 6923234-0 (Version None)
Quarter: 2010Q3

REPORT INFORMATION
  Report Type: 
  Country: None (occurrence: None)
  Receive Date: 20100813
  Receipt Date: 20100802
  Transmission Date: 20110219
  Serious: Yes (Other)
  Sender: FDA-Public Use
  Company Number: IN-PFIZER INC-2010096830

PATIENT
  Age: 28 Year
  Sex: Male

DRUGS (1)
  1. SILDENAFIL CITRATE [Suspect]
     Indication: APHRODISIAC THERAPY
     Dosage: UNK

REACTIONS (4)
  - DRUG ERUPTION [None]
  - ORAL DISORDER [None]
  - ORAL PAIN [None]
  - STOMATITIS [None]
